FAERS Safety Report 6409927-2 (Version None)
Quarter: 2009Q4

REPORT INFORMATION
  Report Type: 
  Country: None (occurrence: None)
  Receive Date: 20091022
  Receipt Date: 20091016
  Transmission Date: 20100525
  Serious: Yes (Other)
  Sender: FDA-Public Use
  Company Number: FR-ABBOTT-09P-056-0603155-00

PATIENT
  Age: 45 Year
  Sex: Female

DRUGS (2)
  1. HUMIRA [Suspect]
     Indication: CROHN'S DISEASE
     Route: 058
  2. IMUREL [Concomitant]
     Indication: CROHN'S DISEASE

REACTIONS (2)
  - CEREBROVASCULAR ACCIDENT [None]
  - PARAESTHESIA [None]
